FAERS Safety Report 5708576-9 (Version None)
Quarter: 2008Q2

REPORT INFORMATION
  Report Type: 
  Country: None (occurrence: None)
  Receive Date: 20080417
  Receipt Date: 20011217
  Transmission Date: 20081010
  Serious: Yes (Life-Threatening)
  Sender: FDA-Public Use
  Company Number: GB-JNJFOC-20080402559

PATIENT
  Age: 34 Year
  Sex: Male

DRUGS (3)
  1. IBUPROFEN [Suspect]
     Indication: BACK PAIN
     Route: 048
  2. DICLOFENAC SODIUM [Suspect]
     Indication: BACK PAIN
     Route: 048
  3. PARACETAMOL [Concomitant]
     Indication: BACK PAIN
     Route: 048

REACTIONS (2)
  - AGRANULOCYTOSIS [None]
  - SEPSIS [None]
